FAERS Safety Report 10174466 (Version 2)
Quarter: 2014Q2

REPORT INFORMATION
  Report Type: Report from Study
  Country: KR (occurrence: KR)
  Receive Date: 20140515
  Receipt Date: 20140523
  Transmission Date: 20141212
  Serious: Yes (Death, Other)
  Sender: FDA-Public Use
  Company Number: KR-PFIZER INC-2014129288

PATIENT
  Age: 85 Year
  Sex: Male

DRUGS (8)
  1. TRITACE [Suspect]
     Dosage: 5 MG, DAILY
     Route: 048
     Dates: start: 20131202, end: 20140402
  2. ASPIRIN [Concomitant]
     Indication: ANGINA PECTORIS
     Dosage: UNK
     Dates: start: 20131103, end: 20140404
  3. PLAVIX [Concomitant]
     Indication: ANGINA PECTORIS
     Dosage: UNK
     Dates: start: 20131103, end: 20140404
  4. ISOKET [Concomitant]
     Indication: ANGINA PECTORIS
     Dosage: UNK
     Dates: start: 20140124, end: 20140404
  5. LASIX [Concomitant]
     Indication: HYPERTENSION
     Dosage: UNK
     Dates: start: 20131105, end: 20140404
  6. SELBEX [Concomitant]
     Indication: ABDOMINAL DISCOMFORT
     Dosage: UNK
     Dates: start: 20131103, end: 20140404
  7. LIPITOR [Concomitant]
     Indication: ANGINA PECTORIS
     Dosage: UNK
     Dates: start: 20140124, end: 20140404
  8. ADALAT [Concomitant]
     Indication: HYPERTENSION
     Dosage: UNK
     Dates: start: 20131103, end: 20140404

REACTIONS (1)
  - Subdural haemorrhage [Fatal]
